FAERS Safety Report 19811101 (Version 1)
Quarter: 2021Q3

REPORT INFORMATION
  Report Type: Spontaneous
  Country: US (occurrence: US)
  Receive Date: 20210910
  Receipt Date: 20210910
  Transmission Date: 20211014
  Serious: No
  Sender: FDA-Public Use
  Company Number: US-ROCHE-2861665

PATIENT
  Sex: Female
  Weight: 95.34 kg

DRUGS (1)
  1. PEGASYS [Suspect]
     Active Substance: PEGINTERFERON ALFA-2A
     Indication: NON-HODGKIN^S LYMPHOMA
     Dosage: 1/2 ML DOSE
     Route: 058

REACTIONS (6)
  - Feeling abnormal [Unknown]
  - Memory impairment [Unknown]
  - Off label use [Unknown]
  - Myalgia [Unknown]
  - Nausea [Unknown]
  - Pain [Unknown]
